FAERS Safety Report 22321233 (Version 3)
Quarter: 2023Q2

REPORT INFORMATION
  Report Type: Report from Study
  Country: DE (occurrence: DE)
  Receive Date: 20230515
  Receipt Date: 20230523
  Transmission Date: 20230722
  Serious: Yes (Death, Other)
  Sender: FDA-Public Use
  Company Number: None

PATIENT
  Sex: Female
  Weight: 66 kg

DRUGS (5)
  1. LETROZOLE [Suspect]
     Active Substance: LETROZOLE
     Indication: Hormone receptor positive HER2 negative breast cancer
     Dosage: 2.5 MILLIGRAM, QD, 2.5 MG, QD
     Route: 048
     Dates: start: 20190126, end: 20230104
  2. KISQALI [Suspect]
     Active Substance: RIBOCICLIB
     Indication: Hormone receptor positive HER2 negative breast cancer
     Dosage: 600 MILLIGRAM, QD
     Route: 048
     Dates: start: 20190126, end: 20190214
  3. KISQALI [Suspect]
     Active Substance: RIBOCICLIB
     Dosage: 400 MILLIGRAM, QD, 400 MG, QD
     Route: 048
     Dates: start: 20190215, end: 20190221
  4. KISQALI [Suspect]
     Active Substance: RIBOCICLIB
     Dosage: 600 MILLIGRAM, QD, 600 MG, QD
     Route: 048
     Dates: start: 20190222, end: 20230104
  5. ATEZOLIZUMAB [Concomitant]
     Active Substance: ATEZOLIZUMAB
     Indication: Product used for unknown indication
     Dosage: UNK
     Route: 065

REACTIONS (7)
  - Renal failure [Fatal]
  - Small cell lung cancer [Not Recovered/Not Resolved]
  - Cytopenia [Recovered/Resolved]
  - Second primary malignancy [Not Recovered/Not Resolved]
  - Neutropenia [Recovered/Resolved]
  - Mucosal inflammation [Unknown]
  - Urinary tract infection [Unknown]

NARRATIVE: CASE EVENT DATE: 20221205
